FAERS Safety Report 8242484-7 (Version None)
Quarter: 2012Q1

REPORT INFORMATION
  Report Type: 
  Country: None (occurrence: None)
  Receive Date: 20120329
  Receipt Date: 20120320
  Transmission Date: 20120608
  Serious: Yes (Other)
  Sender: FDA-Public Use
  Company Number: US-CELGENEUS-163-21880-12022871

PATIENT
  Sex: Female

DRUGS (4)
  1. REVLIMID [Suspect]
     Indication: MULTIPLE MYELOMA
     Dosage: 10 MILLIGRAM
     Route: 048
     Dates: start: 20110914, end: 20120229
  2. REVLIMID [Suspect]
     Dosage: 10 MILLIGRAM
     Route: 048
     Dates: start: 20120301
  3. DEXAMETHASONE [Concomitant]
     Route: 065
  4. OMEPRAZOLE [Concomitant]
     Dosage: 20 MILLIGRAM
     Route: 065

REACTIONS (2)
  - FALL [None]
  - FEMUR FRACTURE [None]
